FAERS Safety Report 7356583-5 (Version None)
Quarter: 2011Q1

REPORT INFORMATION
  Report Type: 
  Country: None (occurrence: None)
  Receive Date: 20110316
  Receipt Date: 20110302
  Transmission Date: 20110831
  Serious: Yes (Hospitalization)
  Sender: FDA-Public Use
  Company Number: PHHY2011IT17096

PATIENT
  Sex: Male

DRUGS (3)
  1. VOLTAREN [Concomitant]
     Indication: BACK PAIN
     Dosage: 75 MG/3 ML
     Route: 030
     Dates: start: 20110111, end: 20110115
  2. MUSCORIL [Concomitant]
     Indication: BACK PAIN
     Dosage: 4 MG/2 ML
     Route: 030
     Dates: start: 20110111, end: 20110115
  3. DIAZEPAM [Suspect]
     Indication: DYSTHYMIC DISORDER
     Dosage: 30 ML
     Route: 048
     Dates: start: 20110115, end: 20110115

REACTIONS (4)
  - DRUG LEVEL INCREASED [None]
  - MIOSIS [None]
  - SOPOR [None]
  - INCORRECT DOSE ADMINISTERED [None]
